FAERS Safety Report 19979755 (Version 1)
Quarter: 2021Q4

REPORT INFORMATION
  Report Type: Spontaneous
  Country: IN (occurrence: IN)
  Receive Date: 20211021
  Receipt Date: 20211021
  Transmission Date: 20220303
  Serious: Yes (Other)
  Sender: FDA-Public Use
  Company Number: None

PATIENT
  Age: 20 Year
  Sex: Male

DRUGS (2)
  1. PREDNISOLONE [Suspect]
     Active Substance: PREDNISOLONE
     Indication: Arthritis reactive
     Dosage: 0.5 MILLIGRAM/KILOGRAM
     Route: 048
  2. CEFTRIAXONE [Concomitant]
     Active Substance: CEFTRIAXONE
     Indication: Gonococcal infection
     Dosage: UNK
     Route: 042

REACTIONS (5)
  - Ulcerative keratitis [Recovered/Resolved]
  - Immune system disorder [Recovered/Resolved]
  - Keratitis [Recovered/Resolved]
  - Infective keratitis [Recovered/Resolved]
  - Staphylococcal infection [Recovered/Resolved]
